FAERS Safety Report 8910051 (Version 4)
Quarter: 2013Q1

REPORT INFORMATION
  Report Type: Spontaneous
  Country: FR (occurrence: FR)
  Receive Date: 20121115
  Receipt Date: 20130107
  Transmission Date: 20140127
  Serious: Yes (Hospitalization, Other)
  Sender: FDA-Public Use
  Company Number: FR-ABBOTT-12P-056-1006603-00

PATIENT
  Sex: Male
  Weight: 83 kg

DRUGS (5)
  1. HUMIRA [Suspect]
     Indication: PSORIASIS
     Route: 058
     Dates: start: 201006, end: 20121022
  2. HUMIRA [Suspect]
     Route: 058
     Dates: start: 20121124, end: 20121124
  3. PNEUMO 23 [Concomitant]
     Indication: PROPHYLAXIS
     Dates: start: 20121003, end: 20121003
  4. REPEVAX [Concomitant]
     Indication: PROPHYLAXIS
     Dates: start: 20121003, end: 20121003
  5. NSAID^S [Concomitant]
     Indication: PRODUCT USED FOR UNKNOWN INDICATION

REACTIONS (2)
  - Henoch-Schonlein purpura [Not Recovered/Not Resolved]
  - Arthralgia [Unknown]
